FAERS Safety Report 12203858 (Version 1)
Quarter: 2016Q1

REPORT INFORMATION
  Report Type: Spontaneous
  Country: US (occurrence: US)
  Receive Date: 20160323
  Receipt Date: 20160323
  Transmission Date: 20160526
  Serious: No
  Sender: FDA-Public Use
  Company Number: US-MALLINCKRODT-T201506241

PATIENT
  Age: 4 Year
  Sex: Male
  Weight: 13 kg

DRUGS (2)
  1. HEPARIN SODIUM AND SODIUM CHLORIDE [Concomitant]
     Active Substance: HEPARIN SODIUM
     Indication: PHOTOPHERESIS
     Dosage: 2,000UNITS IN 500ML NORMAL SALINE, A/C RATIO USED 10:1
     Dates: end: 20151006
  2. UVADEX [Suspect]
     Active Substance: METHOXSALEN
     Indication: PRODUCT USED FOR UNKNOWN INDICATION
     Dosage: UNK
     Route: 065
     Dates: end: 20151006

REACTIONS (1)
  - Heart rate increased [Recovered/Resolved]

NARRATIVE: CASE EVENT DATE: 20151006
